FAERS Safety Report 17447533 (Version 1)
Quarter: 2020Q1

REPORT INFORMATION
  Report Type: Report from Study
  Country: TR (occurrence: TR)
  Receive Date: 20200221
  Receipt Date: 20200221
  Transmission Date: 20200409
  Serious: Yes (Other)
  Sender: FDA-Public Use
  Company Number: TR-JAZZ-2019-TR-018361

PATIENT
  Age: 30 Year
  Weight: 53 kg

DRUGS (4)
  1. XYREM [Suspect]
     Active Substance: SODIUM OXYBATE
     Indication: CATAPLEXY
  2. TEGRETOL XR [Concomitant]
     Active Substance: CARBAMAZEPINE
     Indication: PRODUCT USED FOR UNKNOWN INDICATION
  3. XYREM [Suspect]
     Active Substance: SODIUM OXYBATE
     Indication: NARCOLEPSY
     Dosage: 2.25 G, BID
     Route: 048
     Dates: start: 20191210
  4. KEPPRA [Concomitant]
     Active Substance: LEVETIRACETAM
     Indication: PRODUCT USED FOR UNKNOWN INDICATION

REACTIONS (14)
  - Sleep terror [Unknown]
  - Crying [Recovered/Resolved]
  - Asthenia [Unknown]
  - Dizziness [Unknown]
  - Headache [Unknown]
  - Loss of consciousness [Recovered/Resolved]
  - Balance disorder [Unknown]
  - Chills [Unknown]
  - Somnolence [Unknown]
  - Hyperhidrosis [Unknown]
  - Malaise [Unknown]
  - Restlessness [Recovered/Resolved]
  - Sleep disorder [Recovered/Resolved]
  - Vomiting [Unknown]

NARRATIVE: CASE EVENT DATE: 20191210
